FAERS Safety Report 10949983 (Version 1)
Quarter: 2015Q1

REPORT INFORMATION
  Report Type: Spontaneous
  Country: US (occurrence: None)
  Receive Date: 20150323
  Receipt Date: 20150323
  Transmission Date: 20150721
  Serious: No
  Sender: FDA-Public Use
  Company Number: None

PATIENT
  Age: 30 Year
  Sex: Female
  Weight: 45.36 kg

DRUGS (2)
  1. BUPROPION HCL 150 MG XL [Suspect]
     Active Substance: BUPROPION HYDROCHLORIDE
     Indication: ANXIETY
     Dosage: 1PILL, ONCE DAILY, TAKEN BY MOUTH
     Route: 048
     Dates: start: 20150114, end: 20150309
  2. BUPROPION HCL 150 MG XL [Suspect]
     Active Substance: BUPROPION HYDROCHLORIDE
     Indication: SMOKING CESSATION THERAPY
     Dosage: 1PILL, ONCE DAILY, TAKEN BY MOUTH
     Route: 048
     Dates: start: 20150114, end: 20150309

REACTIONS (3)
  - Urticaria [None]
  - Skin ulcer [None]
  - Acne [None]

NARRATIVE: CASE EVENT DATE: 20150301
